FAERS Safety Report 13670394 (Version 1)
Quarter: 2017Q2

REPORT INFORMATION
  Report Type: Spontaneous
  Country: US (occurrence: US)
  Receive Date: 20170620
  Receipt Date: 20170620
  Transmission Date: 20170830
  Serious: Yes (Hospitalization, Other)
  Sender: FDA-Public Use
  Company Number: US-ELI_LILLY_AND_COMPANY-US201706004227

PATIENT
  Age: 80 Year
  Sex: Female

DRUGS (3)
  1. HUMALOG [Suspect]
     Active Substance: INSULIN LISPRO
     Indication: TYPE 2 DIABETES MELLITUS
     Dosage: 9 U, SLIDING SCALE
     Route: 058
     Dates: start: 1987
  2. LANTUS [Concomitant]
     Active Substance: INSULIN GLARGINE
     Indication: TYPE 2 DIABETES MELLITUS
     Dosage: 29 U, EACH EVENING
  3. HUMALOG [Suspect]
     Active Substance: INSULIN LISPRO
     Dosage: 9 U, SLIDING SCALE
     Route: 058

REACTIONS (13)
  - Dysarthria [Recovered/Resolved]
  - Dysarthria [Not Recovered/Not Resolved]
  - Skin abrasion [Recovered/Resolved]
  - Macular degeneration [Not Recovered/Not Resolved]
  - Anxiety [Recovered/Resolved]
  - Weight decreased [Recovering/Resolving]
  - Osteoporosis [Not Recovered/Not Resolved]
  - Road traffic accident [Recovered/Resolved]
  - Contusion [Recovered/Resolved]
  - Balance disorder [Not Recovered/Not Resolved]
  - Spinal fracture [Not Recovered/Not Resolved]
  - Stress [Recovered/Resolved]
  - Blood glucose decreased [Not Recovered/Not Resolved]

NARRATIVE: CASE EVENT DATE: 2015
